FAERS Safety Report 9221676 (Version 1)
Quarter: 2013Q1

REPORT INFORMATION
  Report Type: Spontaneous
  Country: US (occurrence: None)
  Receive Date: 20120907
  Receipt Date: 20120907
  Transmission Date: 20140127
  Serious: Yes (Other)
  Sender: FDA-Public Use
  Company Number: TH-2012-00247

PATIENT
  Age: 57 Year
  Sex: Male
  Weight: 133 kg

DRUGS (5)
  1. EGRIFTA [Suspect]
     Indication: LIPODYSTROPHY ACQUIRED
     Route: 050
     Dates: start: 20120407, end: 20120418
  2. EPZICOM (LAMIVUDINE, ABACAVIR) [Concomitant]
  3. VIRAMUNE (NEVIRAPINE) (NEVIRAPINE) [Concomitant]
  4. TESTIM (TESTOSTERONE) [Concomitant]
  5. BENAZEPRIL/HCTZ [Concomitant]

REACTIONS (3)
  - Hypersensitivity [None]
  - Pain in extremity [None]
  - Oedema peripheral [None]
